FAERS Safety Report 5025790-9 (Version None)
Quarter: 2006Q2

REPORT INFORMATION
  Report Type: 
  Country: None (occurrence: None)
  Receive Date: 20060608
  Receipt Date: 20060608
  Transmission Date: 20061013
  Serious: No
  Sender: FDA-Public Use
  Company Number: None

PATIENT
  Age: 68 Year
  Sex: Female

DRUGS (1)
  1. IFOSFAMIDE [Suspect]

REACTIONS (2)
  - CATATONIA [None]
  - CONFUSIONAL STATE [None]
